FAERS Safety Report 4557305-3 (Version None)
Quarter: 2005Q1

REPORT INFORMATION
  Report Type: 
  Country: None (occurrence: None)
  Receive Date: 20050118
  Receipt Date: 20050105
  Transmission Date: 20050727
  Serious: Yes (Disabling)
  Sender: FDA-Public Use
  Company Number: 2005001702

PATIENT
  Age: 14 Year
  Sex: Male

DRUGS (7)
  1. VFEND [Suspect]
     Indication: ASPERGILLOSIS
     Dosage: 400 MG (200 MG, 2 IN 1 D), ORAL
     Route: 048
     Dates: start: 20040705, end: 20041230
  2. VINCRISTINE [Suspect]
     Indication: LYMPHOMA
     Dosage: (2 MG, 1 IN 1 WK), INTRAVENOUS
     Route: 042
     Dates: start: 20030109
  3. OMEPRAZOLE [Concomitant]
  4. TROPISETRON HYDROCHLORIDE [Concomitant]
  5. BACTRIM [Concomitant]
  6. AMPHOTERICIN B [Concomitant]
  7. CASPOFUNGIN ACETATE [Concomitant]

REACTIONS (2)
  - NEUROPATHY PERIPHERAL [None]
  - PANCREATITIS [None]
